FAERS Safety Report 8489858-7 (Version None)
Quarter: 2012Q3

REPORT INFORMATION
  Report Type: 
  Country: None (occurrence: None)
  Receive Date: 20120705
  Receipt Date: 20110729
  Transmission Date: 20120928
  Serious: No
  Sender: FDA-Public Use
  Company Number: US-BAUSCH-2011BL005102

PATIENT
  Age: 82 Year
  Sex: Male

DRUGS (3)
  1. DORZOLAMIDE HYDROCHLORIDE [Concomitant]
     Indication: GLAUCOMA
     Route: 047
  2. ONE-A-DAY [Concomitant]
  3. BRIMONIDINE TARTRATE [Suspect]
     Indication: GLAUCOMA
     Route: 047
     Dates: start: 20110725, end: 20110727

REACTIONS (3)
  - OVERDOSE [None]
  - MALAISE [None]
  - DIZZINESS [None]
